FAERS Safety Report 8394007-X (Version None)
Quarter: 2012Q2

REPORT INFORMATION
  Report Type: 
  Country: None (occurrence: None)
  Receive Date: 20120530
  Receipt Date: 20120521
  Transmission Date: 20120825
  Serious: Yes (Death, Hospitalization, Other)
  Sender: FDA-Public Use
  Company Number: FR-VERTEX PHARMACEUTICALS INC.-000000000000000730

PATIENT
  Sex: Female
  Weight: 89 kg

DRUGS (14)
  1. ALDACTONE [Concomitant]
     Indication: CARDIAC FAILURE
     Dates: start: 20111223
  2. NEXIUM [Concomitant]
     Indication: PRODUCT USED FOR UNKNOWN INDICATION
     Dates: start: 20120320
  3. LANTUS [Concomitant]
     Indication: TYPE 1 DIABETES MELLITUS
     Dates: start: 19980101
  4. TELAPREVIR [Suspect]
     Indication: HEPATITIS C
     Dosage: DOSAGE FORM: TABLET
     Route: 048
     Dates: start: 20110718, end: 20111123
  5. LYRICA [Concomitant]
     Indication: NEUROPATHY PERIPHERAL
     Dates: start: 20040101
  6. BACTRIM DS [Concomitant]
     Indication: INFECTION
     Dates: start: 20120316
  7. LEVOTHYROXINE SODIUM [Concomitant]
     Indication: HYPOTHYROIDISM
     Dates: start: 19950101
  8. PROPRANOLOL [Concomitant]
     Indication: TACHYCARDIA PAROXYSMAL
     Dates: start: 20110401
  9. ATARAX [Concomitant]
     Indication: ANXIETY
     Dates: start: 20120101
  10. IMOVANE [Concomitant]
     Indication: INSOMNIA
     Dates: start: 20120101
  11. PEGINTERFERON ALFA-2A [Concomitant]
     Indication: HEPATITIS C
     Dates: end: 20111123
  12. RIBAVIRINE [Concomitant]
     Indication: HEPATITIS C
     Dates: end: 20111123
  13. LASIX [Concomitant]
     Indication: CARDIAC FAILURE
     Dates: start: 20110829
  14. NOVORAPID [Concomitant]
     Indication: TYPE 1 DIABETES MELLITUS
     Dates: start: 19980101

REACTIONS (5)
  - ANAEMIA [None]
  - HEPATIC NEOPLASM MALIGNANT RECURRENT [None]
  - HYPERKALAEMIA [None]
  - VENTRICULAR FAILURE [None]
  - RENAL FAILURE [None]
